FAERS Safety Report 22196065 (Version 1)
Quarter: 2023Q2

REPORT INFORMATION
  Report Type: Spontaneous
  Country: FR (occurrence: FR)
  Receive Date: 20230411
  Receipt Date: 20230411
  Transmission Date: 20230721
  Serious: Yes (Other)
  Sender: FDA-Public Use
  Company Number: FR-AFSSAPS-AVNT2023000291

PATIENT
  Age: 55 Year
  Sex: Male

DRUGS (1)
  1. GABAPENTIN [Suspect]
     Active Substance: GABAPENTIN
     Indication: Product used for unknown indication
     Dosage: 3600 MILLIGRAM, ONCE A DAY (3600 MG/D IN 3 DOSES)
     Route: 048
     Dates: start: 2022

REACTIONS (1)
  - Drug use disorder [Not Recovered/Not Resolved]
